FAERS Safety Report 6971406-1 (Version None)
Quarter: 2010Q3

REPORT INFORMATION
  Report Type: 
  Country: None (occurrence: None)
  Receive Date: 20100908
  Receipt Date: 20100825
  Transmission Date: 20110219
  Serious: Yes (Death, Congenital Anomaly)
  Sender: FDA-Public Use
  Company Number: IN-MYLANLABS-2010S1015541

PATIENT

DRUGS (5)
  1. LAMOTRIGINE [Suspect]
     Indication: MYOCLONIC EPILEPSY
     Route: 064
  2. CLONAZEPAM [Suspect]
     Indication: MYOCLONIC EPILEPSY
     Route: 064
  3. CLONAZEPAM [Suspect]
     Route: 064
  4. CLONAZEPAM [Suspect]
     Route: 064
  5. FOLIC ACID [Concomitant]
     Route: 064

REACTIONS (4)
  - DRUG EXPOSURE DURING PREGNANCY [None]
  - HYDROPS FOETALIS [None]
  - INTRA-UTERINE DEATH [None]
  - MULTIPLE CONGENITAL ABNORMALITIES [None]
